FAERS Safety Report 25754123 (Version 1)
Quarter: 2025Q3

REPORT INFORMATION
  Report Type: Spontaneous
  Country: IN (occurrence: IN)
  Receive Date: 20250903
  Receipt Date: 20250903
  Transmission Date: 20251021
  Serious: Yes (Hospitalization, Other)
  Sender: EXELA PHARMA SCIENCES
  Company Number: IN-EXELAPHARMA-2025EXLA00165

PATIENT
  Age: 36 Year
  Sex: Female

DRUGS (9)
  1. VERAPAMIL HYDROCHLORIDE [Suspect]
     Active Substance: VERAPAMIL HYDROCHLORIDE
     Indication: Ventricular arrhythmia
     Route: 048
     Dates: start: 2022
  2. BISOPROLOL [Concomitant]
     Active Substance: BISOPROLOL
     Indication: Ventricular arrhythmia
     Dosage: PREVIOUS 2.5 MG WAS ESCALATED TO 5 MG.
     Dates: start: 2022
  3. BISOPROLOL [Concomitant]
     Active Substance: BISOPROLOL
     Dates: start: 2022
  4. AMIODARONE [Concomitant]
     Active Substance: AMIODARONE
     Indication: Ventricular arrhythmia
     Route: 042
     Dates: start: 2022
  5. ROPIVACAINE [Concomitant]
     Active Substance: ROPIVACAINE
     Dates: start: 2022
  6. ROPIVACAINE [Concomitant]
     Active Substance: ROPIVACAINE
     Dates: start: 2022
  7. ISOPROTERENOL HYDROCHLORIDE [Concomitant]
     Active Substance: ISOPROTERENOL HYDROCHLORIDE
     Dates: start: 2022
  8. PHENYLEPHRINE [Concomitant]
     Active Substance: PHENYLEPHRINE
     Dates: start: 2022
  9. METOPROLOL [Concomitant]
     Active Substance: METOPROLOL
     Dates: start: 2022

REACTIONS (2)
  - Drug ineffective [Unknown]
  - Condition aggravated [Recovered/Resolved]

NARRATIVE: CASE EVENT DATE: 20220101
